FAERS Safety Report 4332048-X (Version None)
Quarter: 2004Q1

REPORT INFORMATION
  Report Type: 
  Country: None (occurrence: None)
  Receive Date: 20040329
  Receipt Date: 20040319
  Transmission Date: 20041129
  Serious: Yes (Hospitalization)
  Sender: FDA-Public Use
  Company Number: 2004-02-1357

PATIENT
  Age: 74 Year
  Sex: Female
  Weight: 46 kg

DRUGS (8)
  1. INTRON A [Suspect]
     Indication: CHRONIC MYELOID LEUKAEMIA
     Dosage: 3 MIU/WK; INTRAMUSCULAR
     Route: 030
     Dates: start: 20031116, end: 20040207
  2. GLEEVEC [Suspect]
     Indication: CHRONIC MYELOID LEUKAEMIA
     Dosage: 300 - 200 MG; ORAL (SEE IMAGE)
     Route: 048
     Dates: start: 20031116, end: 20031116
  3. GLEEVEC [Suspect]
     Indication: CHRONIC MYELOID LEUKAEMIA
     Dosage: 300 - 200 MG; ORAL (SEE IMAGE)
     Route: 048
     Dates: start: 20031128, end: 20031201
  4. GLEEVEC [Suspect]
     Indication: CHRONIC MYELOID LEUKAEMIA
     Dosage: 300 - 200 MG; ORAL (SEE IMAGE)
     Route: 048
     Dates: start: 20031116, end: 20040209
  5. GLEEVEC [Suspect]
     Indication: CHRONIC MYELOID LEUKAEMIA
     Dosage: 300 - 200 MG; ORAL (SEE IMAGE)
     Route: 048
     Dates: start: 20031204, end: 20040209
  6. NITRODERM TTS TRANSDERMAL FOR HYPERTENSION [Concomitant]
  7. EUGLUCON ORAL FOR DIABETES MELLITUS [Concomitant]
  8. DIETARY INTERVENTION NOS [Concomitant]

REACTIONS (9)
  - ATHEROSCLEROSIS [None]
  - BLOOD LACTATE DEHYDROGENASE INCREASED [None]
  - CEREBRAL INFARCTION [None]
  - DYSARTHRIA [None]
  - HAEMOGLOBIN DECREASED [None]
  - MONOPLEGIA [None]
  - MUSCULAR WEAKNESS [None]
  - THROMBOSIS [None]
  - WHITE BLOOD CELL COUNT DECREASED [None]
